FAERS Safety Report 5823105-7 (Version None)
Quarter: 2008Q3

REPORT INFORMATION
  Report Type: 
  Country: None (occurrence: None)
  Receive Date: 20080725
  Receipt Date: 20070719
  Transmission Date: 20090109
  Serious: No
  Sender: FDA-Public Use
  Company Number: US-AMGEN-KDL235169

PATIENT
  Sex: Male

DRUGS (3)
  1. PROCRIT [Suspect]
     Indication: HAEMORRHAGE
     Dates: start: 20070101
  2. PLAVIX [Concomitant]
     Dates: start: 20030101
  3. ASPIRIN [Concomitant]
     Dates: start: 20030101

REACTIONS (1)
  - HAEMATOCHEZIA [None]
